FAERS Safety Report 5996493-9 (Version None)
Quarter: 2008Q4

REPORT INFORMATION
  Report Type: 
  Country: None (occurrence: None)
  Receive Date: 20081212
  Receipt Date: 20081203
  Transmission Date: 20090506
  Serious: Yes (Hospitalization)
  Sender: FDA-Public Use
  Company Number: US-GENENTECH-272967

PATIENT

DRUGS (2)
  1. BEVACIZUMAB [Suspect]
     Indication: DRUG USE FOR UNKNOWN INDICATION
     Dosage: 5 MG/KG, D1,15,29
     Route: 042
     Dates: start: 20071026
  2. SU11248 [Concomitant]
     Indication: DRUG USE FOR UNKNOWN INDICATION
     Dosage: 50 MG, DAYS 1-28
     Route: 048
     Dates: start: 20071026

REACTIONS (1)
  - HYPOXIA [None]
